FAERS Safety Report 12243696 (Version 1)
Quarter: 2016Q2

REPORT INFORMATION
  Report Type: Report from Study
  Country: US (occurrence: US)
  Receive Date: 20160406
  Receipt Date: 20160406
  Transmission Date: 20160815
  Serious: No
  Sender: FDA-Public Use
  Company Number: ADR-2015-00767

PATIENT
  Age: 61 Year
  Sex: Male

DRUGS (10)
  1. ACETAMINOPHEN-CODEINE [Suspect]
     Active Substance: ACETAMINOPHEN\CODEINE PHOSPHATE
  2. DILAUDID [Suspect]
     Active Substance: HYDROMORPHONE HYDROCHLORIDE
     Dosage: 0.6991 MG/DAY
     Route: 037
  3. TIZANIDINE. [Suspect]
     Active Substance: TIZANIDINE
  4. DILAUDID [Suspect]
     Active Substance: HYDROMORPHONE HYDROCHLORIDE
     Dosage: 0.7706MG/DAY
     Route: 037
     Dates: start: 20150227
  5. BUPIVACAINE. [Suspect]
     Active Substance: BUPIVACAINE
     Dosage: 20.972MG/DAY
     Route: 037
  6. COMPOUNDED BACLOFEN [Suspect]
     Active Substance: BACLOFEN
     Dosage: 104.86 MCG/DAY
     Route: 038
  7. COMPOUNDED BACLOFEN [Suspect]
     Active Substance: BACLOFEN
     Dosage: 115.59MCG/DAY
     Route: 037
     Dates: start: 20150227
  8. BUPIVACAINE. [Suspect]
     Active Substance: BUPIVACAINE
     Dosage: 23.119MG/DAY
     Route: 037
     Dates: start: 20150227
  9. CLONIDINE. [Suspect]
     Active Substance: CLONIDINE
     Dosage: 77.06MCG/DAY
     Route: 037
     Dates: start: 20150227
  10. CLONIDINE. [Suspect]
     Active Substance: CLONIDINE
     Dosage: 69.91MCG/DAY
     Route: 037

REACTIONS (1)
  - Nausea [Recovered/Resolved]
